FAERS Safety Report 11247318 (Version 1)
Quarter: 2015Q3

REPORT INFORMATION
  Report Type: Spontaneous
  Country: US (occurrence: US)
  Receive Date: 20150708
  Receipt Date: 20150708
  Transmission Date: 20151125
  Serious: Yes (Other)
  Sender: FDA-Public Use
  Company Number: US-ELI_LILLY_AND_COMPANY-US201507000427

PATIENT
  Age: 41 Year
  Sex: Female

DRUGS (21)
  1. SINGULAIR [Concomitant]
     Active Substance: MONTELUKAST SODIUM
     Dosage: UNK, UNKNOWN
     Route: 065
  2. DIFLUCAN [Concomitant]
     Active Substance: FLUCONAZOLE
     Dosage: UNK, UNKNOWN
     Route: 065
  3. PROBIOTICS NOS [Concomitant]
     Active Substance: PROBIOTICS NOS
     Dosage: UNK, UNKNOWN
     Route: 065
  4. TRULICITY [Suspect]
     Active Substance: DULAGLUTIDE
     Indication: TYPE 2 DIABETES MELLITUS
     Dosage: 0.75 DF, UNKNOWN
     Route: 065
     Dates: start: 20150601, end: 20150601
  5. COZAAR [Concomitant]
     Active Substance: LOSARTAN POTASSIUM
     Dosage: UNK, UNKNOWN
     Route: 065
  6. ADVAIR HFA [Concomitant]
     Active Substance: FLUTICASONE PROPIONATE\SALMETEROL XINAFOATE
     Dosage: UNK, UNKNOWN
     Route: 065
  7. MAGNEESIUM [Concomitant]
     Active Substance: MAGNESIUM
     Dosage: UNK, UNKNOWN
     Route: 065
  8. VITAMIN D3 [Concomitant]
     Active Substance: CHOLECALCIFEROL
     Dosage: UNK, UNKNOWN
     Route: 065
  9. ALBUTEROL                          /00139501/ [Concomitant]
     Active Substance: ALBUTEROL
     Dosage: UNK, UNKNOWN
     Route: 065
  10. ALOE VERA [Concomitant]
     Active Substance: ALOE VERA LEAF
     Dosage: UNK, UNKNOWN
     Route: 065
  11. NAPROCIL [Concomitant]
     Dosage: UNK, UNKNOWN
     Route: 065
  12. CURCUMA LONGA RHIZOME [Concomitant]
     Dosage: UNK, UNKNOWN
     Route: 065
  13. PRILOSEC [Concomitant]
     Active Substance: OMEPRAZOLE MAGNESIUM
     Dosage: UNK, UNKNOWN
     Route: 065
  14. POTASSIUM [Concomitant]
     Active Substance: POTASSIUM
     Dosage: UNK, UNKNOWN
     Route: 065
  15. CRANBERRY                          /01512301/ [Concomitant]
     Dosage: UNK, UNKNOWN
     Route: 065
  16. ALPHA LIPOIC ACID [Concomitant]
     Active Substance: .ALPHA.-LIPOIC ACID
     Dosage: UNK, UNKNOWN
     Route: 065
  17. ZOFRAN [Concomitant]
     Active Substance: ONDANSETRON HYDROCHLORIDE
     Dosage: UNK, UNKNOWN
     Route: 065
  18. HYDROCHLOROTHIAZIDE. [Concomitant]
     Active Substance: HYDROCHLOROTHIAZIDE
     Dosage: UNK, UNKNOWN
     Route: 065
  19. Q10 [Concomitant]
     Dosage: UNK, UNKNOWN
     Route: 065
  20. LIDOCAIN                           /00033401/ [Concomitant]
     Active Substance: LIDOCAINE
     Dosage: UNK, UNKNOWN
     Route: 065
  21. BIOTIN [Concomitant]
     Active Substance: BIOTIN
     Dosage: UNK, UNKNOWN
     Route: 065

REACTIONS (2)
  - Paraesthesia oral [Recovered/Resolved]
  - Pharyngeal oedema [Recovered/Resolved]

NARRATIVE: CASE EVENT DATE: 20150601
